FAERS Safety Report 21116477 (Version 1)
Quarter: 2022Q3

REPORT INFORMATION
  Report Type: Report from Study
  Country: US (occurrence: US)
  Receive Date: 20220722
  Receipt Date: 20220722
  Transmission Date: 20221027
  Serious: Yes (Other)
  Sender: FDA-Public Use
  Company Number: US-BIOGEN-2022BI01140508

PATIENT
  Sex: Female
  Weight: 76.272 kg

DRUGS (30)
  1. TECFIDERA [Suspect]
     Active Substance: DIMETHYL FUMARATE
     Indication: Multiple sclerosis
     Dosage: MAINTENANCE DOSE
     Route: 050
  2. TECFIDERA [Suspect]
     Active Substance: DIMETHYL FUMARATE
     Dosage: STARTER DOSE
     Route: 050
     Dates: start: 20131203
  3. TECFIDERA [Suspect]
     Active Substance: DIMETHYL FUMARATE
     Dosage: MAINTENANCE DOSE
     Route: 050
     Dates: end: 20140730
  4. TECFIDERA [Suspect]
     Active Substance: DIMETHYL FUMARATE
     Dosage: STARTER DOSE
     Route: 050
  5. TECFIDERA [Suspect]
     Active Substance: DIMETHYL FUMARATE
     Dosage: MAINTENANCE DOSE
     Route: 050
  6. XANAX [Concomitant]
     Active Substance: ALPRAZOLAM
     Indication: Product used for unknown indication
     Dosage: ONE TABLET PO 1 HOUR PRIOR TO INJECTION, MAY REPEAT 2 TIMES
     Route: 050
  7. ASPIRIN [Concomitant]
     Active Substance: ASPIRIN
     Indication: Product used for unknown indication
     Route: 050
  8. COREG [Concomitant]
     Active Substance: CARVEDILOL
     Indication: Product used for unknown indication
     Route: 050
  9. VITAMIN D3 [Concomitant]
     Active Substance: CHOLECALCIFEROL
     Indication: Product used for unknown indication
     Route: 050
  10. cyanocobalamin (vitamin b12) [Concomitant]
     Indication: Product used for unknown indication
     Route: 050
  11. doxycycline (oracea) [Concomitant]
     Indication: Product used for unknown indication
     Dosage: EVERY MORNING
     Route: 050
  12. insulin aspart u-100 (novolog) [Concomitant]
     Indication: Product used for unknown indication
     Dosage: PER SLIDING SCALE
     Route: 050
  13. JANUVIA [Concomitant]
     Active Substance: SITAGLIPTIN PHOSPHATE
     Indication: Product used for unknown indication
     Route: 050
  14. JARDIANCE [Concomitant]
     Active Substance: EMPAGLIFLOZIN
     Indication: Product used for unknown indication
     Route: 050
  15. lactobac no.41 + Bifidobact no. 7 (probiotic-10 oral) [Concomitant]
     Indication: Product used for unknown indication
     Dosage: BY MOUTH
     Route: 050
  16. LYRICA [Concomitant]
     Active Substance: PREGABALIN
     Indication: Product used for unknown indication
     Dosage: EVERY MORNING
     Route: 050
  17. LYRICA [Concomitant]
     Active Substance: PREGABALIN
     Dosage: EVERY EVENING
     Route: 050
  18. sacubitril + valsartan (entresto) [Concomitant]
     Indication: Product used for unknown indication
     Dosage: SACUBITRIL - 24 MG, VALSARTAN 26 MG
     Route: 050
  19. spironolactone (aldactone) [Concomitant]
     Indication: Product used for unknown indication
     Route: 050
  20. SYNTHROID [Concomitant]
     Active Substance: LEVOTHYROXINE SODIUM
     Indication: Product used for unknown indication
     Dosage: 30 MINUTES BREAKFAST
     Route: 050
  21. valacyclovir (valtrex) [Concomitant]
     Indication: Product used for unknown indication
     Dosage: 1 TABLET ONCE DAILY, TAKE 2 TABLETS BY MOUTH TWICE DAILY FOR 2 DAYS FOR EXACERBATION
     Route: 050
  22. albuterol hfa (ventolin hfa) [Concomitant]
     Indication: Product used for unknown indication
     Dosage: 90 MCG/ACTUATION INHALER, INHALER 2 PUFFS INTO THE LUNGS EVERY 4 HOURS AS NEEDED FOR WHEEZE
     Route: 050
  23. butalbital + acetaminophen [Concomitant]
     Indication: Product used for unknown indication
     Dosage: BUTALBITAL - 50 MG, ACETAMINOPHEN - 325 MG - 1 TABLET BY MOUTH
     Route: 050
  24. clotrimazole + betamethasone (lotrisone) [Concomitant]
     Indication: Product used for unknown indication
     Dosage: AS NEEDED
     Route: 050
  25. LASIX [Concomitant]
     Active Substance: FUROSEMIDE
     Indication: Product used for unknown indication
     Route: 050
  26. lidocaine (lidoderm) [Concomitant]
     Indication: Product used for unknown indication
     Dosage: 5%, PLACE 1 PATCH ONTO THE SKIN DAILY. REMOVE AND DISCARD PATCH WITHIN 12 HOURS OR AS DIRECTED BY MD
     Route: 050
  27. meclizine (dramamine less drowsy) [Concomitant]
     Indication: Product used for unknown indication
     Dosage: AS NEEDED (MOTION SICKNESS)
     Route: 050
  28. CANNABIS SATIVA SUBSP. INDICA TOP [Concomitant]
     Active Substance: CANNABIS SATIVA SUBSP. INDICA TOP
     Indication: Product used for unknown indication
     Route: 050
  29. nitroglycerin (nitrostat) [Concomitant]
     Indication: Chest pain
     Dosage: 1 TABLET FOR CHEST PAIN AND DYSPNEA. MAY REPEAT 1 DOSE IN 5 MINUTES IF NEEDED.
     Route: 050
  30. ZOFRAN [Concomitant]
     Active Substance: ONDANSETRON HYDROCHLORIDE
     Indication: Product used for unknown indication
     Route: 050

REACTIONS (2)
  - Skin cancer [Unknown]
  - Ankle fracture [Unknown]

NARRATIVE: CASE EVENT DATE: 20140101
